FAERS Safety Report 4600303-1 (Version None)
Quarter: 2005Q1

REPORT INFORMATION
  Report Type: 
  Country: None (occurrence: None)
  Receive Date: 20050303
  Receipt Date: 20050211
  Transmission Date: 20050727
  Serious: Yes (Hospitalization)
  Sender: FDA-Public Use
  Company Number: FR_041205361

PATIENT
  Age: 27 Year
  Sex: Male

DRUGS (1)
  1. ZYPREXA [Suspect]
     Indication: SCHIZOPHRENIA
     Dosage: 15 MG/1 DAY
     Route: 048

REACTIONS (3)
  - DRUG ABUSER [None]
  - HAEMORRHAGIC CEREBRAL INFARCTION [None]
  - SYSTOLIC HYPERTENSION [None]
